FAERS Safety Report 17716012 (Version 4)
Quarter: 2021Q3

REPORT INFORMATION
  Report Type: Spontaneous
  Country: US (occurrence: US)
  Receive Date: 20200428
  Receipt Date: 20210811
  Transmission Date: 20211014
  Serious: Yes (Death, Hospitalization, Other)
  Sender: FDA-Public Use
  Company Number: US-ASTRAZENECA-2020SE54536

PATIENT
  Age: 18145 Day
  Sex: Female

DRUGS (71)
  1. PROTONIX [Suspect]
     Active Substance: PANTOPRAZOLE SODIUM
     Indication: GASTROOESOPHAGEAL REFLUX DISEASE
     Route: 065
     Dates: start: 2008, end: 2018
  2. ZOSYN [Concomitant]
     Active Substance: PIPERACILLIN SODIUM\TAZOBACTAM SODIUM
  3. ZETIA [Concomitant]
     Active Substance: EZETIMIBE
  4. ZOCOR [Concomitant]
     Active Substance: SIMVASTATIN
  5. ADVAIR HFA [Concomitant]
     Active Substance: FLUTICASONE PROPIONATE\SALMETEROL XINAFOATE
  6. CELLCEPT [Concomitant]
     Active Substance: MYCOPHENOLATE MOFETIL\MYCOPHENOLATE MOFETIL HYDROCHLORIDE
  7. ATORVASTATIN [Concomitant]
     Active Substance: ATORVASTATIN
     Indication: BLOOD CHOLESTEROL ABNORMAL
     Dosage: JUN?SEPT 2017
  8. ASPIRIN. [Concomitant]
     Active Substance: ASPIRIN
     Indication: CARDIAC DISORDER
     Dates: start: 2009, end: 2021
  9. BENADRYL [Concomitant]
     Active Substance: DIPHENHYDRAMINE HYDROCHLORIDE
     Indication: SINUS PAIN
     Dates: start: 2000, end: 2021
  10. VITAMIN D [Concomitant]
     Active Substance: VITAMIN D NOS
     Indication: VITAMIN D DEFICIENCY
     Dates: start: 2015, end: 2021
  11. CIMETIDINE [Concomitant]
     Active Substance: CIMETIDINE
     Dates: start: 2009, end: 2013
  12. GABAPENTIN. [Concomitant]
     Active Substance: GABAPENTIN
  13. NEXIUM I.V. [Suspect]
     Active Substance: ESOMEPRAZOLE SODIUM
     Route: 042
     Dates: start: 198910, end: 201305
  14. PRILOSEC [Suspect]
     Active Substance: OMEPRAZOLE MAGNESIUM
     Indication: GASTROOESOPHAGEAL REFLUX DISEASE
     Route: 048
     Dates: start: 2009, end: 2016
  15. PREVACID [Suspect]
     Active Substance: LANSOPRAZOLE
     Indication: GASTROOESOPHAGEAL REFLUX DISEASE
     Dosage: GENERIC
     Route: 065
     Dates: start: 198910, end: 201305
  16. PREVACID [Suspect]
     Active Substance: LANSOPRAZOLE
     Indication: GASTROOESOPHAGEAL REFLUX DISEASE
     Route: 065
     Dates: start: 2011, end: 2011
  17. PROTONIX [Suspect]
     Active Substance: PANTOPRAZOLE SODIUM
     Indication: GASTROOESOPHAGEAL REFLUX DISEASE
     Route: 065
     Dates: start: 198910, end: 201305
  18. PROTONIX [Suspect]
     Active Substance: PANTOPRAZOLE SODIUM
     Route: 065
     Dates: start: 198910, end: 201305
  19. ALBUTEROL. [Concomitant]
     Active Substance: ALBUTEROL
  20. LEVAQUIN [Concomitant]
     Active Substance: LEVOFLOXACIN
  21. TRAMADOL. [Concomitant]
     Active Substance: TRAMADOL
     Indication: PAIN
     Dosage: JUN?NOV 2017
  22. METHOTREXATE. [Concomitant]
     Active Substance: METHOTREXATE
     Indication: ARTHRITIS
     Dosage: JUN 2017
  23. PROVENTIL HFA [Concomitant]
     Active Substance: ALBUTEROL SULFATE
  24. PRILOSEC [Suspect]
     Active Substance: OMEPRAZOLE MAGNESIUM
     Indication: GASTROOESOPHAGEAL REFLUX DISEASE
     Dosage: GENERIC
     Route: 065
     Dates: start: 2009, end: 2021
  25. PREVACID IV [Suspect]
     Active Substance: LANSOPRAZOLE
     Route: 065
     Dates: start: 198910, end: 201305
  26. PROTONIX [Suspect]
     Active Substance: PANTOPRAZOLE SODIUM
     Indication: GASTROOESOPHAGEAL REFLUX DISEASE
     Route: 065
     Dates: start: 2008, end: 20130506
  27. ACETAMINOPHEN. [Concomitant]
     Active Substance: ACETAMINOPHEN
     Indication: PAIN
     Dates: start: 2003, end: 2021
  28. LORATADINE. [Concomitant]
     Active Substance: LORATADINE
  29. ACTOS [Concomitant]
     Active Substance: PIOGLITAZONE HYDROCHLORIDE
  30. LYRICA [Concomitant]
     Active Substance: PREGABALIN
  31. XANAX [Concomitant]
     Active Substance: ALPRAZOLAM
  32. SULFASALAZINE. [Concomitant]
     Active Substance: SULFASALAZINE
     Indication: RHEUMATOID ARTHRITIS
     Dosage: AUG?NOV 2017
  33. ZANTAC [Concomitant]
     Active Substance: RANITIDINE HYDROCHLORIDE
     Dates: start: 2009, end: 2013
  34. CYCLOBENZAPRINE. [Concomitant]
     Active Substance: CYCLOBENZAPRINE
  35. PRILOSEC OTC [Suspect]
     Active Substance: OMEPRAZOLE MAGNESIUM
     Indication: GASTROOESOPHAGEAL REFLUX DISEASE
     Dosage: ACCORDING TO PKG
     Route: 048
     Dates: start: 2011, end: 2017
  36. LISINOPRIL. [Concomitant]
     Active Substance: LISINOPRIL
     Indication: HYPERTENSION
     Dosage: JUL?OCT 2017
  37. ALTACE [Concomitant]
     Active Substance: RAMIPRIL
  38. NOVOLIN NOS [Concomitant]
     Active Substance: INSULIN HUMAN
  39. ZOFRAN [Concomitant]
     Active Substance: ONDANSETRON HYDROCHLORIDE
  40. SOLU?MEDROL [Concomitant]
     Active Substance: METHYLPREDNISOLONE SODIUM SUCCINATE
  41. BENADRYL [Concomitant]
     Active Substance: DIPHENHYDRAMINE HYDROCHLORIDE
     Indication: HYPERSENSITIVITY
     Dates: start: 2000, end: 2021
  42. FOLIC ACID. [Concomitant]
     Active Substance: FOLIC ACID
     Indication: FOLATE DEFICIENCY
     Dates: start: 2015, end: 2021
  43. HUMULIN NOS [Concomitant]
     Active Substance: INSULIN HUMAN
  44. GLYBURIDE. [Concomitant]
     Active Substance: GLYBURIDE
  45. PRILOSEC [Suspect]
     Active Substance: OMEPRAZOLE MAGNESIUM
     Indication: GASTROOESOPHAGEAL REFLUX DISEASE
     Route: 048
     Dates: start: 198910, end: 201305
  46. PRILOSEC [Suspect]
     Active Substance: OMEPRAZOLE MAGNESIUM
     Indication: GASTROOESOPHAGEAL REFLUX DISEASE
     Dosage: GENERIC
     Route: 065
     Dates: start: 2009
  47. HYDROXYCHLOROQUINE [Concomitant]
     Active Substance: HYDROXYCHLOROQUINE
  48. BUMETANIDE. [Concomitant]
     Active Substance: BUMETANIDE
     Indication: DIURETIC THERAPY
     Dosage: JUN?NOV 2017
  49. ALLOPURINOL. [Concomitant]
     Active Substance: ALLOPURINOL
     Indication: BLOOD URIC ACID ABNORMAL
     Dosage: JUN?NOV 2017
  50. VITAMIN C [Concomitant]
     Active Substance: ASCORBIC ACID
     Indication: VITAMIN C DEFICIENCY
     Dates: start: 2015, end: 2021
  51. IRON [Concomitant]
     Active Substance: IRON
     Indication: IRON DEFICIENCY
     Dates: start: 2015, end: 2021
  52. MONTELUKAST SODIUM. [Concomitant]
     Active Substance: MONTELUKAST SODIUM
  53. CLOPIDOGREL BISULFATE. [Concomitant]
     Active Substance: CLOPIDOGREL BISULFATE
  54. PRILOSEC [Suspect]
     Active Substance: OMEPRAZOLE MAGNESIUM
     Indication: GASTROOESOPHAGEAL REFLUX DISEASE
     Route: 048
     Dates: start: 1989, end: 2016
  55. AMOXICILLIN. [Concomitant]
     Active Substance: AMOXICILLIN
     Indication: INFECTION
     Dosage: SEPT 2017
  56. PEPCID [Concomitant]
     Active Substance: FAMOTIDINE
     Dates: start: 2008, end: 2013
  57. TUMS [Concomitant]
     Active Substance: CALCIUM CARBONATE
     Dates: start: 2009, end: 2013
  58. CALCITRIOL. [Concomitant]
     Active Substance: CALCITRIOL
  59. DILTIAZEM. [Concomitant]
     Active Substance: DILTIAZEM
  60. TOPIRAMATE. [Concomitant]
     Active Substance: TOPIRAMATE
  61. METFORMIN [Concomitant]
     Active Substance: METFORMIN HYDROCHLORIDE
  62. INSULIN [Concomitant]
     Active Substance: INSULIN NOS
  63. NEXIUM [Suspect]
     Active Substance: ESOMEPRAZOLE MAGNESIUM
     Route: 048
     Dates: start: 198910, end: 201305
  64. PRILOSEC OTC [Suspect]
     Active Substance: OMEPRAZOLE MAGNESIUM
     Indication: GASTROOESOPHAGEAL REFLUX DISEASE
     Route: 048
     Dates: start: 198910, end: 201305
  65. PREVACID [Suspect]
     Active Substance: LANSOPRAZOLE
     Indication: GASTROOESOPHAGEAL REFLUX DISEASE
     Dosage: GENERIC
     Route: 065
     Dates: start: 20110101, end: 20170702
  66. ATROVENT [Concomitant]
     Active Substance: IPRATROPIUM BROMIDE
  67. COREG [Concomitant]
     Active Substance: CARVEDILOL
  68. LOVENOX [Concomitant]
     Active Substance: ENOXAPARIN SODIUM
  69. NORVASC [Concomitant]
     Active Substance: AMLODIPINE BESYLATE
  70. VITAMIN B12 [Concomitant]
     Active Substance: CYANOCOBALAMIN
     Indication: VITAMIN B12 DEFICIENCY
     Dates: start: 2015, end: 2021
  71. PREDNISONE. [Concomitant]
     Active Substance: PREDNISONE

REACTIONS (5)
  - Acute kidney injury [Unknown]
  - Renal failure [Not Recovered/Not Resolved]
  - Death [Fatal]
  - Renal injury [Unknown]
  - Chronic kidney disease [Unknown]

NARRATIVE: CASE EVENT DATE: 20071112
